FAERS Safety Report 9651155 (Version 1)
Quarter: 2013Q4

REPORT INFORMATION
  Report Type: Spontaneous
  Country: NL (occurrence: NL)
  Receive Date: 20131029
  Receipt Date: 20131029
  Transmission Date: 20140711
  Serious: Yes (Death)
  Sender: FDA-Public Use
  Company Number: NL-AMGEN-NLDSP2013075401

PATIENT
  Age: 80 Year
  Sex: Male

DRUGS (7)
  1. XGEVA [Suspect]
     Indication: PROPHYLAXIS
     Dosage: 120 MG, Q4WK
     Route: 058
     Dates: start: 20130311
  2. ACETYLSALICYLZUUR CARDIO [Concomitant]
  3. BICALUTAMIDE [Concomitant]
  4. BISOPROLOL [Concomitant]
  5. DEXAMETHASON                       /00016001/ [Concomitant]
  6. OMEPRAZOL                          /00661201/ [Concomitant]
  7. OXYNORM [Concomitant]

REACTIONS (1)
  - Death [Fatal]
